FAERS Safety Report 4767982-X (Version None)
Quarter: 2005Q3

REPORT INFORMATION
  Report Type: 
  Country: None (occurrence: None)
  Receive Date: 20050912
  Receipt Date: 20050831
  Transmission Date: 20060218
  Serious: Yes (Hospitalization)
  Sender: FDA-Public Use
  Company Number: US-2005-012457

PATIENT
  Age: 57 Year
  Sex: Female
  Weight: 62.6 kg

DRUGS (1)
  1. BETASERON [Suspect]
     Indication: SECONDARY PROGRESSIVE MULTIPLE SCLEROSIS
     Dosage: 8 MIU, EVERY 2D, SUBCUTANEOUS
     Route: 058
     Dates: start: 20050110

REACTIONS (3)
  - LOSS OF CONSCIOUSNESS [None]
  - PNEUMONIA [None]
  - URINARY TRACT INFECTION [None]
